FAERS Safety Report 13650581 (Version 1)
Quarter: 2017Q2

REPORT INFORMATION
  Report Type: Spontaneous
  Country: IT (occurrence: IT)
  Receive Date: 20170614
  Receipt Date: 20170614
  Transmission Date: 20170830
  Serious: Yes (Other)
  Sender: FDA-Public Use
  Company Number: IT-CIPLA LTD.-2017IT10624

PATIENT

DRUGS (3)
  1. FLUOROURACIL. [Suspect]
     Active Substance: FLUOROURACIL
     Indication: HEAD AND NECK CANCER
     Dosage: 6800 MG/M2, CYCLICAL
     Route: 042
     Dates: start: 20151223, end: 20160414
  2. CARBOPLATIN. [Suspect]
     Active Substance: CARBOPLATIN
     Indication: HEAD AND NECK CANCER
     Dosage: 198 MG/M2, CYCLICAL
     Route: 042
     Dates: start: 20151223, end: 20160414
  3. ERBITUX [Suspect]
     Active Substance: CETUXIMAB
     Indication: HEAD AND NECK CANCER
     Dosage: 250 MG/M2, CYCLICAL
     Route: 042
     Dates: start: 20151223, end: 20160519

REACTIONS (5)
  - Acne [Unknown]
  - Dermatitis [Unknown]
  - Thrombocytopenia [Unknown]
  - Stomatitis [Unknown]
  - Hypocalcaemia [Unknown]

NARRATIVE: CASE EVENT DATE: 20160125
